FAERS Safety Report 26062412 (Version 1)
Quarter: 2025Q4

REPORT INFORMATION
  Report Type: Spontaneous
  Country: US (occurrence: US)
  Receive Date: 20251119
  Receipt Date: 20251119
  Transmission Date: 20260119
  Serious: Yes (Other)
  Sender: BAXTER
  Company Number: US-BAXTER-2025BAX024252

PATIENT
  Sex: Male

DRUGS (2)
  1. VANCOMYCIN [Suspect]
     Active Substance: VANCOMYCIN
     Indication: Osteomyelitis
     Route: 065
  2. DALVANCE [Concomitant]
     Active Substance: DALBAVANCIN HYDROCHLORIDE
     Route: 065

REACTIONS (2)
  - Tubulointerstitial nephritis [Unknown]
  - Renal tubular necrosis [Unknown]
